FAERS Safety Report 8866398 (Version 1)
Quarter: 2012Q4

REPORT INFORMATION
  Report Type: Report from Study
  Country: US (occurrence: US)
  Receive Date: 20121025
  Receipt Date: 20121025
  Transmission Date: 20130627
  Serious: Yes (Death)
  Sender: FDA-Public Use
  Company Number: US-CUBIST-2012S1000871

PATIENT
  Age: 70 Year
  Sex: Female
  Weight: 120 kg

DRUGS (11)
  1. CUBICIN [Suspect]
     Indication: STREPTOCOCCAL BACTERAEMIA
     Route: 042
     Dates: start: 20120109, end: 20120110
  2. CUBICIN [Suspect]
     Indication: STREPTOCOCCAL BACTERAEMIA
     Route: 042
     Dates: start: 20120109, end: 20120110
  3. CUBICIN [Suspect]
     Indication: STREPTOCOCCAL BACTERAEMIA
     Route: 042
     Dates: start: 20120110, end: 20120112
  4. CUBICIN [Suspect]
     Indication: STREPTOCOCCAL BACTERAEMIA
     Route: 042
     Dates: start: 20120110, end: 20120112
  5. CUBICIN [Suspect]
     Indication: STREPTOCOCCAL BACTERAEMIA
     Route: 042
     Dates: start: 20120112, end: 20120122
  6. CUBICIN [Suspect]
     Indication: STREPTOCOCCAL BACTERAEMIA
     Route: 042
     Dates: start: 20120112, end: 20120122
  7. VANCOCIN [Concomitant]
     Indication: PRODUCT USED FOR UNKNOWN INDICATION
     Route: 065
  8. TYGACIL [Concomitant]
     Indication: PRODUCT USED FOR UNKNOWN INDICATION
     Route: 065
  9. ZOSYN [Concomitant]
     Indication: PRODUCT USED FOR UNKNOWN INDICATION
     Route: 065
  10. ZYVOX [Concomitant]
     Indication: PRODUCT USED FOR UNKNOWN INDICATION
     Route: 065
  11. AVELOX [Concomitant]
     Indication: PRODUCT USED FOR UNKNOWN INDICATION
     Route: 048

REACTIONS (1)
  - Cardiac valve disease [Fatal]
